FAERS Safety Report 8138065 (Version 7)
Quarter: 2013Q2

REPORT INFORMATION
  Report Type: Spontaneous
  Country: US (occurrence: US)
  Receive Date: 20110915
  Receipt Date: 20130417
  Transmission Date: 20140414
  Serious: Yes (Other)
  Sender: FDA-Public Use
  Company Number: US-BAYER-2011-081857

PATIENT
  Age: 70 Year
  Sex: Male
  Weight: 90 kg

DRUGS (8)
  1. BAYER ADVANCED ASPIRIN EXTRA STRENGTH [Suspect]
     Indication: ARTHRITIS
     Dosage: 500 MG, PRN
     Route: 048
     Dates: start: 20110827, end: 20110906
  2. FISH OIL [Concomitant]
  3. SIMVASTATIN [Concomitant]
     Dosage: 40 MG, QD
  4. ASPIRIN [Concomitant]
     Dosage: DAILY
  5. VITAMIN D [Concomitant]
  6. TIMOLOL [Concomitant]
     Indication: GLAUCOMA
     Dosage: 1 GTT, QD
     Route: 047
  7. OSTEOFIX [Concomitant]
     Dosage: 2 DF, QD
  8. MULTIVITAMINS [Concomitant]
     Dosage: 1 DF, QD

REACTIONS (9)
  - Choking [Recovered/Resolved]
  - Throat irritation [Recovered/Resolved]
  - Insomnia [Recovered/Resolved]
  - Dyspnoea [Recovered/Resolved]
  - Retching [Recovered/Resolved]
  - Oropharyngeal discomfort [Recovered/Resolved]
  - Productive cough [Recovered/Resolved]
  - Dysphagia [Recovered/Resolved]
  - Poor quality drug administered [None]
